FAERS Safety Report 8220850-3 (Version None)
Quarter: 2012Q1

REPORT INFORMATION
  Report Type: 
  Country: None (occurrence: None)
  Receive Date: 20120320
  Receipt Date: 20120316
  Transmission Date: 20120608
  Serious: Yes (Other)
  Sender: FDA-Public Use
  Company Number: NL-PFIZER INC-2012070473

PATIENT
  Age: 63 Year
  Sex: Male
  Weight: 80 kg

DRUGS (3)
  1. ATORVASTATIN CALCIUM [Suspect]
     Indication: HYPERCHOLESTEROLAEMIA
     Dosage: 20 MG, ONCE DAILY
     Dates: start: 20070901, end: 20120308
  2. BISOPROLOL [Concomitant]
     Dosage: 2.5 MG, ONCE DAILY
     Dates: start: 20100101
  3. ASCAL CARDIO [Concomitant]
     Dosage: UNK
     Dates: start: 20070901

REACTIONS (2)
  - DEAFNESS [None]
  - SENSATION OF HEAVINESS [None]
